FAERS Safety Report 4971013-6 (Version None)
Quarter: 2006Q2

REPORT INFORMATION
  Report Type: 
  Country: None (occurrence: None)
  Receive Date: 20060412
  Receipt Date: 20060308
  Transmission Date: 20061013
  Serious: Yes (Hospitalization)
  Sender: FDA-Public Use
  Company Number: PHBS2006JP03762

PATIENT
  Age: 79 Year
  Sex: Male
  Weight: 69 kg

DRUGS (3)
  1. KELNAC [Concomitant]
     Indication: GASTRITIS
     Dosage: 60 MG, BID
     Route: 048
     Dates: start: 20051120
  2. PLETAL [Concomitant]
     Indication: CEREBRAL INFARCTION
     Dosage: 100 MG, BID
     Route: 048
     Dates: start: 20051120
  3. DIOVAN [Suspect]
     Indication: HYPERTENSION
     Dosage: 80 MG, QD
     Route: 048
     Dates: start: 20050107

REACTIONS (4)
  - ARTERIOSCLEROSIS [None]
  - GASTRITIS [None]
  - PARALYSIS [None]
  - TRANSIENT ISCHAEMIC ATTACK [None]
